FAERS Safety Report 7215932-9 (Version None)
Quarter: 2011Q1

REPORT INFORMATION
  Report Type: 
  Country: None (occurrence: None)
  Receive Date: 20110107
  Receipt Date: 20101223
  Transmission Date: 20110831
  Serious: Yes (Hospitalization)
  Sender: FDA-Public Use
  Company Number: NL-CELGENEUS-114-20785-10110878

PATIENT
  Sex: Male
  Weight: 67 kg

DRUGS (12)
  1. PREDNISONE [Suspect]
     Route: 048
     Dates: start: 20101014
  2. OMEPRAZOLE [Concomitant]
     Route: 048
     Dates: start: 20101021, end: 20101029
  3. ASCAL [Concomitant]
     Route: 048
     Dates: start: 20100915, end: 20101029
  4. NITRAZEPAM [Concomitant]
     Indication: INSOMNIA
     Route: 048
     Dates: start: 20100901, end: 20101024
  5. THALIDOMIDE [Suspect]
     Route: 048
     Dates: start: 20101014, end: 20101025
  6. METOCLOPRAMIDE [Concomitant]
     Indication: NAUSEA
     Route: 048
     Dates: start: 20101017, end: 20101029
  7. PARACETAMOL [Concomitant]
     Route: 048
     Dates: start: 20100915, end: 20101001
  8. MELPHALAN [Suspect]
     Route: 048
     Dates: start: 20101014
  9. MELPHALAN [Suspect]
     Indication: MULTIPLE MYELOMA
     Route: 048
     Dates: start: 20100915
  10. PREDNISONE [Suspect]
     Indication: MULTIPLE MYELOMA
     Route: 048
     Dates: start: 20100915
  11. LACTULOSE [Concomitant]
     Indication: CONSTIPATION
     Route: 048
     Dates: start: 20100915, end: 20101024
  12. THALIDOMIDE [Suspect]
     Indication: MULTIPLE MYELOMA
     Route: 048
     Dates: start: 20100915

REACTIONS (2)
  - CONSTIPATION [None]
  - CARCINOID TUMOUR OF THE DUODENUM [None]
